FAERS Safety Report 11201408 (Version 2)
Quarter: 2015Q3

REPORT INFORMATION
  Report Type: Spontaneous
  Country: IT (occurrence: None)
  Receive Date: 20150617
  Receipt Date: 20150728
  Transmission Date: 20151125
  Serious: Yes (Other)
  Sender: FDA-Public Use
  Company Number: 2015AP009939

PATIENT
  Age: 48 Year
  Sex: Female

DRUGS (7)
  1. ROCALTROL (CALCITRIOL) [Concomitant]
  2. ZESTRIL (LISINOPRIL) [Concomitant]
  3. CARDIOASPIRIN (ACETYLSALICYLIC ACID) [Concomitant]
     Active Substance: ASPIRIN
  4. FERRIPROX [Suspect]
     Active Substance: DEFERIPRONE
     Indication: THALASSAEMIA BETA
     Dates: start: 201006, end: 201308
  5. DESFERAL [Concomitant]
     Active Substance: DEFEROXAMINE MESYLATE
  6. DEFERASIROX [Concomitant]
     Active Substance: DEFERASIROX
  7. EUTIROX (LEVOTHYROXINE SODIUM) [Concomitant]
     Active Substance: LEVOTHYROXINE SODIUM

REACTIONS (1)
  - Agranulocytosis [None]

NARRATIVE: CASE EVENT DATE: 20150530
